FAERS Safety Report 9263243 (Version 2)
Quarter: 2013Q2

REPORT INFORMATION
  Report Type: Report from Study
  Country: US (occurrence: US)
  Receive Date: 20130430
  Receipt Date: 20130502
  Transmission Date: 20140414
  Serious: Yes (Hospitalization)
  Sender: FDA-Public Use
  Company Number: US-ROCHE-1216769

PATIENT
  Age: 16 Year
  Sex: Male

DRUGS (2)
  1. SOMATROPIN [Suspect]
     Indication: GROWTH RETARDATION
     Route: 058
     Dates: start: 20111230, end: 20130412
  2. ARIMIDEX [Concomitant]

REACTIONS (1)
  - Epiphysiolysis [Recovered/Resolved]
